FAERS Safety Report 14162450 (Version 2)
Quarter: 2017Q4

REPORT INFORMATION
  Report Type: Spontaneous
  Country: US (occurrence: US)
  Receive Date: 20171106
  Receipt Date: 20171228
  Transmission Date: 20180321
  Serious: No
  Sender: FDA-Public Use
  Company Number: US-009507513-1710USA009810

PATIENT
  Age: 21 Year
  Sex: Female
  Weight: 112.4 kg

DRUGS (5)
  1. NEXPLANON [Suspect]
     Active Substance: ETONOGESTREL
     Dosage: 1 IMPLANT, 1 EVERY 3 YEARS
     Route: 059
     Dates: start: 20170927
  2. NEXPLANON [Suspect]
     Active Substance: ETONOGESTREL
     Indication: CONTRACEPTION
     Dosage: 1 IMPALNT ON LEFT ARM IN THE SULCUS BICIPITALIS MEDIALIS , 1 EVERY 3 YEARS
     Route: 059
     Dates: start: 20170317, end: 20170621
  3. CITALOPRAM [Concomitant]
     Active Substance: CITALOPRAM HYDROBROMIDE
     Indication: DEPRESSION
     Dosage: 20 MG (1 TABLET), QD
     Route: 048
     Dates: start: 20140818
  4. LEVOTHYROXINE SODIUM. [Concomitant]
     Active Substance: LEVOTHYROXINE SODIUM
     Indication: HYPOTHYROIDISM
     Dosage: 300 MG (1 TABLET), QD
     Dates: start: 20170328
  5. METFORMIN [Concomitant]
     Active Substance: METFORMIN HYDROCHLORIDE
     Indication: TYPE 2 DIABETES MELLITUS
     Dosage: 500 MG (1 TABLET), QD
     Route: 048
     Dates: start: 20170328

REACTIONS (2)
  - Limb discomfort [Unknown]
  - Device kink [Recovered/Resolved]

NARRATIVE: CASE EVENT DATE: 2017
